FAERS Safety Report 11892873 (Version 1)
Quarter: 2016Q1

REPORT INFORMATION
  Report Type: Spontaneous
  Country: US (occurrence: US)
  Receive Date: 20160106
  Receipt Date: 20160106
  Transmission Date: 20160526
  Serious: Yes (Other)
  Sender: FDA-Public Use
  Company Number: US-SA-2016SA001643

PATIENT
  Age: 49 Year
  Sex: Female

DRUGS (14)
  1. ACETAMINOPHEN W/OXYCODONE [Concomitant]
     Active Substance: ACETAMINOPHEN\OXYCODONE HYDROCHLORIDE
  2. AUBAGIO [Suspect]
     Active Substance: TERIFLUNOMIDE
     Indication: MULTIPLE SCLEROSIS
     Route: 048
  3. BABY ASPIRIN [Concomitant]
     Active Substance: ASPIRIN
  4. DICYCLOMINE HYDROCHLORIDE. [Concomitant]
     Active Substance: DICYCLOMINE HYDROCHLORIDE
  5. PROMETHAZINE HYDROCHLORIDE. [Concomitant]
     Active Substance: PROMETHAZINE HYDROCHLORIDE
  6. VITAMIN D3 [Concomitant]
     Active Substance: CHOLECALCIFEROL
  7. DIAZEPAM. [Concomitant]
     Active Substance: DIAZEPAM
  8. IMITREX [Concomitant]
     Active Substance: SUMATRIPTAN SUCCINATE
  9. ESTRADIOL. [Concomitant]
     Active Substance: ESTRADIOL
  10. MAXALT [Concomitant]
     Active Substance: RIZATRIPTAN BENZOATE
  11. LYRICA [Concomitant]
     Active Substance: PREGABALIN
  12. NEURONTIN [Concomitant]
     Active Substance: GABAPENTIN
  13. RANITIDINE HYDROCHLORIDE. [Concomitant]
     Active Substance: RANITIDINE HYDROCHLORIDE
  14. FLOVENT [Concomitant]
     Active Substance: FLUTICASONE PROPIONATE
     Dosage: FLOVENT HFA

REACTIONS (5)
  - Pain [Unknown]
  - Therapeutic response unexpected [Unknown]
  - Urinary retention [Unknown]
  - Central venous catheterisation [Unknown]
  - Anxiety [Unknown]
